FAERS Safety Report 17865922 (Version 3)
Quarter: 2021Q3

REPORT INFORMATION
  Report Type: Spontaneous
  Country: US (occurrence: US)
  Receive Date: 20200605
  Receipt Date: 20210726
  Transmission Date: 20211014
  Serious: No
  Sender: FDA-Public Use
  Company Number: US-PFIZER INC-2020219992

PATIENT
  Age: 84 Year
  Sex: Female
  Weight: 54.43 kg

DRUGS (2)
  1. IBRANCE [Suspect]
     Active Substance: PALBOCICLIB
     Indication: BREAST CANCER RECURRENT
     Dosage: 75 MG, CYCLIC, (ONCE DAILY FOR 21 DAYS, THEN 1 WEEK OFF)
     Dates: start: 2015
  2. LETROZOLE. [Concomitant]
     Active Substance: LETROZOLE
     Dosage: UNK
     Dates: start: 2015

REACTIONS (6)
  - Product label confusion [Unknown]
  - Product label on wrong product [Unknown]
  - White blood cell count abnormal [Unknown]
  - Blood test abnormal [Unknown]
  - Toxicity to various agents [Unknown]
  - Liver disorder [Unknown]
